FAERS Safety Report 14419999 (Version 1)
Quarter: 2018Q1

REPORT INFORMATION
  Report Type: Not Available
  Country: US (occurrence: US)
  Receive Date: 20180122
  Receipt Date: 20180122
  Transmission Date: 20180509
  Serious: No
  Sender: FDA-Public Use
  Company Number: US-NEUROCRINE BIOSCIENCES INC.-2018NBI00137

PATIENT
  Age: 54 Year
  Sex: Female

DRUGS (1)
  1. INGREZZA [Suspect]
     Active Substance: VALBENAZINE
     Indication: TARDIVE DYSKINESIA
     Route: 048
     Dates: start: 20170912

REACTIONS (5)
  - Weight increased [Unknown]
  - Kidney infection [Unknown]
  - Nocturia [Unknown]
  - Dyskinesia [Unknown]
  - Renal pain [Unknown]

NARRATIVE: CASE EVENT DATE: 201709
